FAERS Safety Report 6403052-2 (Version None)
Quarter: 2009Q4

REPORT INFORMATION
  Report Type: 
  Country: None (occurrence: None)
  Receive Date: 20091016
  Receipt Date: 20091016
  Transmission Date: 20100525
  Serious: Yes (Other)
  Sender: FDA-Public Use
  Company Number: None

PATIENT
  Sex: Female
  Weight: 65.318 kg

DRUGS (2)
  1. TETRACYCLINE [Suspect]
     Indication: GINGIVAL INFECTION
     Dosage: 250 MG 4X/DAY
  2. GEODON [Suspect]
     Indication: INSOMNIA
     Dosage: 160 MG./DAY

REACTIONS (8)
  - GAIT DISTURBANCE [None]
  - HOMICIDAL IDEATION [None]
  - HYPOAESTHESIA [None]
  - HYPOAESTHESIA EYE [None]
  - HYPOAESTHESIA FACIAL [None]
  - LIVER INJURY [None]
  - PRESYNCOPE [None]
  - RENAL INJURY [None]
